FAERS Safety Report 9841649 (Version 1)
Quarter: 2013Q4

REPORT INFORMATION
  Report Type: Spontaneous
  Country: US (occurrence: None)
  Receive Date: 20131219
  Receipt Date: 20131219
  Transmission Date: 20140711
  Serious: Yes (Death)
  Sender: FDA-Public Use
  Company Number: 163-20785-13061890

PATIENT
  Age: 86 Year
  Sex: Female

DRUGS (9)
  1. THALOMID [Suspect]
     Indication: GASTROINTESTINAL DISORDER
     Dosage: 50 MG, 28 IN 28 D, PO
     Route: 048
  2. ACTOS (PIOGLITAZONE) [Concomitant]
  3. ASPIRIN (ACETYLSALICYLIC ACID) [Concomitant]
  4. CELEXA (CITALOPRAM HYDROBROMIDE) [Concomitant]
  5. COREG (CARVEDILOL) [Concomitant]
  6. DUONEB (COMBIVENT) [Concomitant]
  7. IRON (IRON) [Concomitant]
  8. LASIX (FUROSEMIDE) [Concomitant]
  9. LEVEMIR FLEXPEN (INSULIN DETEMIR) [Concomitant]

REACTIONS (1)
  - Death [None]
